FAERS Safety Report 24277297 (Version 2)
Quarter: 2025Q3

REPORT INFORMATION
  Report Type: Spontaneous
  Country: EU (occurrence: EU)
  Receive Date: 20240903
  Receipt Date: 20250818
  Transmission Date: 20251021
  Serious: Yes (Life-Threatening, Hospitalization, Other)
  Sender: MYLAN
  Company Number: EU-SK LIFE SCIENCE, INC-SKPVG-2024-001802

PATIENT
  Age: 26 Year
  Sex: Female

DRUGS (36)
  1. PHENYTOIN [Interacting]
     Active Substance: PHENYTOIN
     Indication: Seizure
     Dosage: 300 MILLIGRAM, QD
  2. PHENYTOIN [Interacting]
     Active Substance: PHENYTOIN
     Indication: Status epilepticus
     Dosage: 300 MILLIGRAM, QD
     Route: 065
  3. PHENYTOIN [Interacting]
     Active Substance: PHENYTOIN
     Dosage: 300 MILLIGRAM, QD
     Route: 065
  4. PHENYTOIN [Interacting]
     Active Substance: PHENYTOIN
     Dosage: 300 MILLIGRAM, QD
  5. DIAZEPAM [Suspect]
     Active Substance: DIAZEPAM
     Indication: Status epilepticus
  6. DIAZEPAM [Suspect]
     Active Substance: DIAZEPAM
     Route: 065
  7. DIAZEPAM [Suspect]
     Active Substance: DIAZEPAM
     Route: 065
  8. DIAZEPAM [Suspect]
     Active Substance: DIAZEPAM
  9. XCOPRI [Interacting]
     Active Substance: CENOBAMATE
     Indication: Epilepsy
     Dosage: 100 MILLIGRAM, QD (LOADING DOSE)
  10. XCOPRI [Interacting]
     Active Substance: CENOBAMATE
     Dosage: 100 MILLIGRAM, QD (LOADING DOSE)
  11. XCOPRI [Interacting]
     Active Substance: CENOBAMATE
     Dosage: 100 MILLIGRAM, QD (LOADING DOSE)
     Route: 045
  12. XCOPRI [Interacting]
     Active Substance: CENOBAMATE
     Dosage: 100 MILLIGRAM, QD (LOADING DOSE)
     Route: 045
  13. XCOPRI [Interacting]
     Active Substance: CENOBAMATE
     Dosage: 150 MILLIGRAM, QD
  14. XCOPRI [Interacting]
     Active Substance: CENOBAMATE
     Dosage: 150 MILLIGRAM, QD
  15. XCOPRI [Interacting]
     Active Substance: CENOBAMATE
     Dosage: 150 MILLIGRAM, QD
     Route: 045
  16. XCOPRI [Interacting]
     Active Substance: CENOBAMATE
     Dosage: 150 MILLIGRAM, QD
     Route: 045
  17. METHYLPREDNISOLONE [Suspect]
     Active Substance: METHYLPREDNISOLONE
     Indication: Encephalitis autoimmune
     Dosage: 1000 MILLIGRAM, Q3D
  18. METHYLPREDNISOLONE [Suspect]
     Active Substance: METHYLPREDNISOLONE
     Dosage: 1000 MILLIGRAM, Q3D
     Route: 065
  19. METHYLPREDNISOLONE [Suspect]
     Active Substance: METHYLPREDNISOLONE
     Dosage: 1000 MILLIGRAM, Q3D
     Route: 065
  20. METHYLPREDNISOLONE [Suspect]
     Active Substance: METHYLPREDNISOLONE
     Dosage: 1000 MILLIGRAM, Q3D
  21. LACOSAMIDE [Suspect]
     Active Substance: LACOSAMIDE
     Indication: Status epilepticus
  22. LACOSAMIDE [Suspect]
     Active Substance: LACOSAMIDE
     Route: 065
  23. LACOSAMIDE [Suspect]
     Active Substance: LACOSAMIDE
     Route: 065
  24. LACOSAMIDE [Suspect]
     Active Substance: LACOSAMIDE
  25. IMMUNE GLOBULIN NOS [Suspect]
     Active Substance: IMMUNE GLOBULIN NOS
     Indication: Encephalitis autoimmune
     Dosage: 0.4 GRAM PER KILOGRAM, Q5D
  26. IMMUNE GLOBULIN NOS [Suspect]
     Active Substance: IMMUNE GLOBULIN NOS
     Dosage: 0.4 GRAM PER KILOGRAM, Q5D
     Route: 042
  27. IMMUNE GLOBULIN NOS [Suspect]
     Active Substance: IMMUNE GLOBULIN NOS
     Dosage: 0.4 GRAM PER KILOGRAM, Q5D
     Route: 042
  28. IMMUNE GLOBULIN NOS [Suspect]
     Active Substance: IMMUNE GLOBULIN NOS
     Dosage: 0.4 GRAM PER KILOGRAM, Q5D
  29. LEVETIRACETAM [Concomitant]
     Active Substance: LEVETIRACETAM
     Indication: Status epilepticus
     Dosage: 2000 MILLIGRAM, QD
  30. LEVETIRACETAM [Concomitant]
     Active Substance: LEVETIRACETAM
     Dosage: 2000 MILLIGRAM, QD
     Route: 065
  31. LEVETIRACETAM [Concomitant]
     Active Substance: LEVETIRACETAM
     Dosage: 2000 MILLIGRAM, QD
     Route: 065
  32. LEVETIRACETAM [Concomitant]
     Active Substance: LEVETIRACETAM
     Dosage: 2000 MILLIGRAM, QD
  33. VALPROATE SODIUM [Concomitant]
     Active Substance: VALPROATE SODIUM
     Indication: Status epilepticus
     Dosage: 2000 MILLIGRAM, QD
  34. VALPROATE SODIUM [Concomitant]
     Active Substance: VALPROATE SODIUM
     Dosage: 2000 MILLIGRAM, QD
     Route: 065
  35. VALPROATE SODIUM [Concomitant]
     Active Substance: VALPROATE SODIUM
     Dosage: 2000 MILLIGRAM, QD
     Route: 065
  36. VALPROATE SODIUM [Concomitant]
     Active Substance: VALPROATE SODIUM
     Dosage: 2000 MILLIGRAM, QD

REACTIONS (9)
  - Drug ineffective [Unknown]
  - Focal dyscognitive seizures [Recovered/Resolved]
  - Toxicity to various agents [Recovering/Resolving]
  - Drug interaction [Recovering/Resolving]
  - Vomiting [Recovered/Resolved]
  - Diarrhoea [Recovered/Resolved]
  - Product use in unapproved indication [Not Recovered/Not Resolved]
  - Off label use [Unknown]
  - Product use issue [Unknown]
